FAERS Safety Report 19157035 (Version 1)
Quarter: 2021Q2

REPORT INFORMATION
  Report Type: Spontaneous
  Country: NG (occurrence: NG)
  Receive Date: 20210420
  Receipt Date: 20210420
  Transmission Date: 20210717
  Serious: Yes (Hospitalization, Other)
  Sender: FDA-Public Use
  Company Number: NG-ALKEM LABORATORIES LIMITED-NG-ALKEM-2021-01979

PATIENT
  Age: 26 Year
  Sex: Male

DRUGS (1)
  1. AMPHETAMINE SULFATE. [Suspect]
     Active Substance: AMPHETAMINE SULFATE
     Indication: PRODUCT USED FOR UNKNOWN INDICATION
     Dosage: UNK UNK, ONCE
     Route: 048

REACTIONS (2)
  - Abdominal pain lower [Recovered/Resolved]
  - Urinary retention [Recovered/Resolved]
